FAERS Safety Report 7485767-0 (Version None)
Quarter: 2011Q2

REPORT INFORMATION
  Report Type: 
  Country: None (occurrence: None)
  Receive Date: 20110517
  Receipt Date: 20110225
  Transmission Date: 20111010
  Serious: Yes (Life-Threatening)
  Sender: FDA-Public Use
  Company Number: IT-BAYER-2011-018361

PATIENT
  Sex: Male

DRUGS (1)
  1. ACETYLSALICYLIC ACID SRT [Suspect]

REACTIONS (4)
  - NAUSEA [None]
  - TRANSAMINASES INCREASED [None]
  - OLIGURIA [None]
  - ASTHENIA [None]
